FAERS Safety Report 5432075-5 (Version None)
Quarter: 2007Q3

REPORT INFORMATION
  Report Type: 
  Country: None (occurrence: None)
  Receive Date: 20070830
  Receipt Date: 20070823
  Transmission Date: 20080115
  Serious: Yes (Other)
  Sender: FDA-Public Use
  Company Number: IN-BOEHRINGER INGELHEIM PHARMACEUTICALS, INC.-2007-DE-03483GD

PATIENT
  Sex: Female

DRUGS (4)
  1. VIRAMUNE [Suspect]
     Indication: HUMAN IMMUNODEFICIENCY VIRUS TRANSMISSION
     Dosage: 2 MG/KG (10 MG/ML)
     Route: 048
  2. VIRAMUNE [Suspect]
     Indication: PROPHYLAXIS
     Route: 015
  3. ZIDOVUDINE [Suspect]
     Indication: HUMAN IMMUNODEFICIENCY VIRUS TRANSMISSION
     Route: 015
  4. ZIDOVUDINE [Suspect]
     Indication: PROPHYLAXIS
     Dosage: 4 MG/KG TWICE DAILY (10 MG/ML)
     Route: 048

REACTIONS (2)
  - NEUTROPENIA [None]
  - WEIGHT DECREASED [None]
